FAERS Safety Report 8307814-6 (Version None)
Quarter: 2012Q2

REPORT INFORMATION
  Report Type: 
  Country: None (occurrence: None)
  Receive Date: 20120424
  Receipt Date: 20110808
  Transmission Date: 20120825
  Serious: Yes (Other)
  Sender: FDA-Public Use
  Company Number: US-TEVA-2009001880

PATIENT
  Sex: Male
  Weight: 90.8 kg

DRUGS (4)
  1. PROVIGIL [Suspect]
     Dosage: 800 MILLIGRAM;
     Route: 048
     Dates: start: 20090218, end: 20090309
  2. AMITRIPTYLINE HCL [Concomitant]
     Route: 048
  3. PROVIGIL [Suspect]
     Indication: NARCOLEPSY
     Dosage: 100 MILLIGRAM;
     Route: 048
     Dates: start: 20090203, end: 20090217
  4. PROVIGIL [Suspect]
     Dosage: 400 MILLIGRAM;
     Route: 048
     Dates: start: 20090310

REACTIONS (7)
  - ACCIDENTAL OVERDOSE [None]
  - SUICIDAL IDEATION [None]
  - RHINORRHOEA [None]
  - NAUSEA [None]
  - DEPRESSION [None]
  - INSOMNIA [None]
  - DRUG INEFFECTIVE [None]
